FAERS Safety Report 21986869 (Version 2)
Quarter: 2024Q2

REPORT INFORMATION
  Report Type: Spontaneous
  Country: FR (occurrence: FR)
  Receive Date: 20230213
  Receipt Date: 20240425
  Transmission Date: 20240716
  Serious: Yes (Hospitalization)
  Sender: FDA-Public Use
  Company Number: None

PATIENT
  Age: 70 Year
  Sex: Male
  Weight: 67 kg

DRUGS (8)
  1. PACLITAXEL [Suspect]
     Active Substance: PACLITAXEL
     Indication: Squamous cell carcinoma
     Dosage: 294 MG, SINGLE
     Route: 042
     Dates: start: 20230102, end: 20230102
  2. FULPHILA [Suspect]
     Active Substance: PEGFILGRASTIM-JMDB
     Indication: Neutropenia
     Dosage: 6 MG, SINGLE
     Route: 058
     Dates: start: 20230104, end: 20230104
  3. KEYTRUDA [Suspect]
     Active Substance: PEMBROLIZUMAB
     Indication: Squamous cell carcinoma
     Dosage: 200 MG, SINGLE
     Route: 042
     Dates: start: 20230102, end: 20230102
  4. CARBOPLATIN [Suspect]
     Active Substance: CARBOPLATIN
     Indication: Squamous cell carcinoma
     Dosage: 620 MG, SINGLE
     Route: 042
     Dates: start: 20230102, end: 20230102
  5. LORMETAZEPAM [Concomitant]
     Active Substance: LORMETAZEPAM
  6. TRAMADOL HCL [Concomitant]
     Active Substance: TRAMADOL HYDROCHLORIDE
  7. ALPRAZOLAM [Concomitant]
     Active Substance: ALPRAZOLAM
  8. METHADONE [Concomitant]
     Active Substance: METHADONE HYDROCHLORIDE

REACTIONS (1)
  - Henoch-Schonlein purpura [Recovered/Resolved with Sequelae]

NARRATIVE: CASE EVENT DATE: 20230114
